FAERS Safety Report 9758082 (Version 1)
Quarter: 2013Q4

REPORT INFORMATION
  Report Type: Spontaneous
  Country: US (occurrence: None)
  Receive Date: 20131213
  Receipt Date: 20131213
  Transmission Date: 20140711
  Serious: No
  Sender: FDA-Public Use
  Company Number: None

PATIENT
  Age: 45 Year
  Sex: Female
  Weight: 62.6 kg

DRUGS (1)
  1. GENERIC CONCERTA [Suspect]
     Indication: ATTENTION DEFICIT/HYPERACTIVITY DISORDER
     Route: 048
     Dates: start: 20131111, end: 20131212

REACTIONS (5)
  - Drug effect decreased [None]
  - Product substitution issue [None]
  - Product quality issue [None]
  - Disturbance in attention [None]
  - Headache [None]
